FAERS Safety Report 23532439 (Version 1)
Quarter: 2024Q1

REPORT INFORMATION
  Report Type: Report from Study
  Country: US (occurrence: US)
  Receive Date: 20240216
  Receipt Date: 20240216
  Transmission Date: 20240409
  Serious: Yes (Death)
  Sender: FDA-Public Use
  Company Number: US-ABBVIE-5642463

PATIENT
  Sex: Female

DRUGS (11)
  1. VENCLEXTA [Suspect]
     Active Substance: VENETOCLAX
     Indication: Acute myeloid leukaemia recurrent
     Dosage: 50MG : THEN 2 TABLETS (100 MG) DAILY WITH BREAKFAST FOR 1 DAY, THEN 4 TABLETS (200 MG) DAILY  WIT...
     Route: 048
  2. VENCLEXTA [Suspect]
     Active Substance: VENETOCLAX
     Indication: Acute myeloid leukaemia recurrent
     Dosage: 50MG:THEN 4 TABLETS (200 MG) DAILY WITH BREAKFAST FOR 1 DAY. DO NOT TAKE FIRST DOSE UNTIL? DIRECT...
     Route: 048
  3. VENCLEXTA [Suspect]
     Active Substance: VENETOCLAX
     Indication: Acute myeloid leukaemia recurrent
     Dosage: 100 MG TABLET: TAKE 2 TABLETS (200 MG) BY MOUTH DAILY WITH BREAKFAST. DO NOT TAKE FIRST DOSE UNTI...
     Route: 048
     Dates: start: 20230306
  4. VENCLEXTA [Suspect]
     Active Substance: VENETOCLAX
     Indication: Acute myeloid leukaemia recurrent
     Dosage: LINE OF THERAPY -THIRD OR GREATER?TAKE 1 TABLET (50 MG) BY MOUTH DAILY WITH BREAKFAST FOR 1 DAY?F...
     Route: 048
  5. CRESEMBA [Concomitant]
     Active Substance: ISAVUCONAZONIUM SULFATE
     Indication: Product used for unknown indication
     Dosage: FORM STRENGTH: 186 MILLIGRAM
     Route: 048
  6. ACYCLOVIR [Concomitant]
     Active Substance: ACYCLOVIR
     Indication: Product used for unknown indication
     Dosage: FORM STRENGTH: 800 MILLIGRAM
     Route: 048
  7. Magnesium plus [Concomitant]
     Indication: Product used for unknown indication
     Dosage: FORM STRENGTH: 133 MILLIGRAM
     Route: 048
  8. MIRTAZAPINE [Concomitant]
     Active Substance: MIRTAZAPINE
     Indication: Product used for unknown indication
     Dosage: TAKE 0.5 TABLETS (7.5 MG) BY MOUTH AT BEDTIME.?FORM STRENGTH: 15 MILLIGRAM
     Route: 048
  9. ENASIDENIB [Concomitant]
     Active Substance: ENASIDENIB
     Indication: Product used for unknown indication
     Dosage: FORM STRENGTH: 100 MILLIGRAM
     Route: 048
  10. AMLODIPINE [Concomitant]
     Active Substance: AMLODIPINE BESYLATE
     Indication: Product used for unknown indication
     Dosage: FORM STRENGTH: 5 MILLIGRAM
     Route: 048
  11. ONDANSETRON [Concomitant]
     Active Substance: ONDANSETRON
     Indication: Vomiting
     Dosage: FORM STRENGTH: 8 MILLIGRAM
     Route: 048

REACTIONS (1)
  - Death [Fatal]
